FAERS Safety Report 4710463-X (Version None)
Quarter: 2005Q3

REPORT INFORMATION
  Report Type: 
  Country: None (occurrence: None)
  Receive Date: 20050711
  Receipt Date: 20050630
  Transmission Date: 20060218
  Serious: Yes (Death)
  Sender: FDA-Public Use
  Company Number: JP-JNJFOC-20050700451

PATIENT
  Sex: Female

DRUGS (6)
  1. RISPERDAL [Suspect]
     Route: 049
     Dates: start: 20040319, end: 20040521
  2. RISPERDAL [Suspect]
     Indication: SCHIZOPHRENIA
     Route: 049
     Dates: start: 20040319, end: 20040521
  3. MAGNESIUM OXIDE [Concomitant]
     Indication: CONSTIPATION
     Route: 049
     Dates: start: 20030709, end: 20040521
  4. IMIDAPRIL HYDROCHLORIDE [Concomitant]
     Route: 049
     Dates: start: 20040219, end: 20040521
  5. IMIDAPRIL HYDROCHLORIDE [Concomitant]
     Indication: HYPERTENSION
     Route: 049
     Dates: start: 20040219, end: 20040521
  6. DIMETICONE [Concomitant]
     Indication: ABDOMINAL DISTENSION
     Route: 049
     Dates: start: 20040319, end: 20040521

REACTIONS (1)
  - PNEUMONIA [None]
